FAERS Safety Report 17287210 (Version 4)
Quarter: 2020Q2

REPORT INFORMATION
  Report Type: Report from Study
  Country: US (occurrence: US)
  Receive Date: 20200120
  Receipt Date: 20200611
  Transmission Date: 20200713
  Serious: Yes (Other)
  Sender: FDA-Public Use
  Company Number: US-ROCHE-2520526

PATIENT
  Sex: Female
  Weight: 65.38 kg

DRUGS (3)
  1. OCREVUS [Suspect]
     Active Substance: OCRELIZUMAB
     Indication: MULTIPLE SCLEROSIS
     Dosage: NEXT DATES OF ADMINISTRATION: 04/MAY/2018, 19/JUN/2018, 09/NOV/2018 AND 14/AUG/2019?ONGOING:YES
     Route: 042
     Dates: start: 20170915
  2. CELEBREX [Concomitant]
     Active Substance: CELECOXIB
     Route: 048
  3. OXYBUTYNIN. [Concomitant]
     Active Substance: OXYBUTYNIN CHLORIDE
     Route: 048

REACTIONS (4)
  - Hypertension [Unknown]
  - Nephrolithiasis [Not Recovered/Not Resolved]
  - Cystitis [Recovered/Resolved]
  - Urinary tract infection [Recovered/Resolved]

NARRATIVE: CASE EVENT DATE: 2019
